FAERS Safety Report 6509003-4 (Version None)
Quarter: 2009Q4

REPORT INFORMATION
  Report Type: 
  Country: None (occurrence: None)
  Receive Date: 20091221
  Receipt Date: 20090910
  Transmission Date: 20100525
  Serious: No
  Sender: FDA-Public Use
  Company Number: US-ASTRAZENECA-2009SE12392

PATIENT
  Age: 863 Month
  Sex: Female
  Weight: 59 kg

DRUGS (10)
  1. CRESTOR [Suspect]
     Indication: BLOOD CHOLESTEROL INCREASED
     Route: 048
  2. CRESTOR [Suspect]
     Route: 048
  3. NIASPAN [Concomitant]
  4. SYNTHROID [Concomitant]
  5. ASPIRIN [Concomitant]
  6. M.V.I. [Concomitant]
  7. FISH OIL [Concomitant]
  8. VIT B-12 [Concomitant]
  9. MAGNESIUM [Concomitant]
  10. ALLERGY MEDICATION [Concomitant]

REACTIONS (12)
  - ABDOMINAL PAIN UPPER [None]
  - ABNORMAL SENSATION IN EYE [None]
  - BLISTER [None]
  - CHILLS [None]
  - CONSTIPATION [None]
  - DISORIENTATION [None]
  - MALAISE [None]
  - MUSCULAR WEAKNESS [None]
  - MYALGIA [None]
  - NAUSEA [None]
  - TACHYARRHYTHMIA [None]
  - VISION BLURRED [None]
